FAERS Safety Report 7440113-3 (Version None)
Quarter: 2011Q2

REPORT INFORMATION
  Report Type: 
  Country: None (occurrence: None)
  Receive Date: 20110427
  Receipt Date: 20110426
  Transmission Date: 20111010
  Serious: Yes (Other)
  Sender: FDA-Public Use
  Company Number: ES-ROCHE-769105

PATIENT
  Age: 84 Year
  Sex: Female

DRUGS (8)
  1. AIRTAL [Concomitant]
     Route: 048
  2. RIVOTRIL [Suspect]
     Route: 048
     Dates: start: 20110224, end: 20110225
  3. GALANTAMINE HYDROBROMIDE [Concomitant]
     Dosage: FREQUENCY : DAILY
     Route: 048
  4. LEXATIN [Concomitant]
     Route: 048
  5. CO-DIOVAN [Concomitant]
     Dosage: FREQUENCY : DAILY
     Route: 048
  6. EBIXA [Concomitant]
     Route: 048
  7. PANTOPRAZOLE SODIUM [Concomitant]
  8. RIVOTRIL [Suspect]
     Route: 048
     Dates: start: 20110220, end: 20110221

REACTIONS (4)
  - ATAXIA [None]
  - MUSCLE CONTRACTIONS INVOLUNTARY [None]
  - TREMOR [None]
  - DYSTONIA [None]
